FAERS Safety Report 4896833-8 (Version None)
Quarter: 2006Q1

REPORT INFORMATION
  Report Type: 
  Country: None (occurrence: None)
  Receive Date: 20060131
  Receipt Date: 20050831
  Transmission Date: 20060701
  Serious: Yes (Life-Threatening, Hospitalization)
  Sender: FDA-Public Use
  Company Number: 200517857GDDC

PATIENT
  Age: 13 Year
  Sex: Male
  Weight: 55 kg

DRUGS (2)
  1. LANTUS [Suspect]
     Route: 058
     Dates: start: 20040324, end: 20050523
  2. NOVORAPID [Concomitant]
     Indication: DIABETES MELLITUS
     Dosage: DOSE: VARIABLE

REACTIONS (3)
  - DEVICE FAILURE [None]
  - DIABETIC KETOACIDOSIS [None]
  - PHARMACEUTICAL PRODUCT COMPLAINT [None]
